FAERS Safety Report 7048878-X (Version None)
Quarter: 2010Q4

REPORT INFORMATION
  Report Type: 
  Country: None (occurrence: None)
  Receive Date: 20101012
  Receipt Date: 20100607
  Transmission Date: 20110411
  Serious: Yes (Life-Threatening, Hospitalization)
  Sender: FDA-Public Use
  Company Number: 20108165

PATIENT
  Sex: Male

DRUGS (1)
  1. LIORESAL [Suspect]
     Indication: MUSCLE SPASTICITY
     Dosage: 550.6 - 100 MCG, DAILY, INTRATHECAL
     Route: 037

REACTIONS (15)
  - DEVICE COMPONENT ISSUE [None]
  - DEVICE FAILURE [None]
  - DEVICE INFORMATION OUTPUT ISSUE [None]
  - DEVICE LEAKAGE [None]
  - DRUG WITHDRAWAL SYNDROME [None]
  - HALLUCINATION [None]
  - HOT FLUSH [None]
  - HYPERHIDROSIS [None]
  - INJURY [None]
  - MEDICAL INDUCTION OF COMA [None]
  - MUSCLE SPASTICITY [None]
  - RENAL FAILURE [None]
  - RHINORRHOEA [None]
  - SEPSIS [None]
  - UNDERDOSE [None]
